FAERS Safety Report 8299839-4 (Version None)
Quarter: 2012Q2

REPORT INFORMATION
  Report Type: 
  Country: None (occurrence: None)
  Receive Date: 20120419
  Receipt Date: 20120406
  Transmission Date: 20120825
  Serious: Yes (Hospitalization, Other)
  Sender: FDA-Public Use
  Company Number: PH-BAXTER-2011BH034647

PATIENT
  Sex: Female

DRUGS (7)
  1. CALCIUM CARBONATE [Concomitant]
  2. DIANEAL PD2 WITH 2.5% DEXTROSE [Suspect]
     Route: 033
  3. DIANEAL PD2 WITH 4.25% DEXTROSE [Suspect]
     Route: 033
  4. FERROUS SULFATE TAB [Concomitant]
  5. FOLIC ACID [Concomitant]
  6. AMLODIPINE [Concomitant]
  7. DIANEAL PD-2 W/ DEXTROSE 1.5% [Suspect]
     Route: 033

REACTIONS (5)
  - ALTERED STATE OF CONSCIOUSNESS [None]
  - INFECTIOUS PERITONITIS [None]
  - PYREXIA [None]
  - ENCEPHALOPATHY [None]
  - DISORIENTATION [None]
